FAERS Safety Report 8539778-4 (Version None)
Quarter: 2012Q3

REPORT INFORMATION
  Report Type: 
  Country: None (occurrence: None)
  Receive Date: 20120726
  Receipt Date: 20111107
  Transmission Date: 20120928
  Serious: No
  Sender: FDA-Public Use
  Company Number: US-MYLANLABS-2011S1021492

PATIENT
  Age: 76 Year
  Sex: Female

DRUGS (6)
  1. ASPIRIN [Concomitant]
  2. CLONIDINE HYDROCHLORIDE [Suspect]
     Indication: BLOOD PRESSURE INCREASED
     Route: 048
     Dates: start: 20090801, end: 20090801
  3. CLONIDINE HYDROCHLORIDE [Suspect]
     Route: 048
     Dates: start: 20090801, end: 20110501
  4. LEVOTHYROXINE SODIUM [Concomitant]
     Indication: HYPOTHYROIDISM
     Route: 048
  5. CLONIDINE HYDROCHLORIDE [Suspect]
     Route: 048
     Dates: start: 20110501, end: 20110701
  6. CLONIDINE HYDROCHLORIDE [Suspect]
     Route: 048
     Dates: start: 20110701

REACTIONS (7)
  - ASTHENIA [None]
  - SYNCOPE [None]
  - AGITATION [None]
  - DRY MOUTH [None]
  - PALPITATIONS [None]
  - DIZZINESS [None]
  - SOMNOLENCE [None]
